FAERS Safety Report 11922341 (Version 2)
Quarter: 2016Q1

REPORT INFORMATION
  Report Type: Spontaneous
  Country: CN (occurrence: CN)
  Receive Date: 20160115
  Receipt Date: 20160226
  Transmission Date: 20160526
  Serious: Yes (Death, Hospitalization)
  Sender: FDA-Public Use
  Company Number: CN-EISAI MEDICAL RESEARCH-EC-2016-013504

PATIENT
  Age: 84 Year
  Sex: Male

DRUGS (2)
  1. ARICEPT [Suspect]
     Active Substance: DONEPEZIL HYDROCHLORIDE
     Indication: CEREBRAL INFARCTION
     Route: 048
     Dates: start: 201408, end: 201408
  2. ARICEPT [Suspect]
     Active Substance: DONEPEZIL HYDROCHLORIDE
     Indication: DEMENTIA ALZHEIMER^S TYPE
     Route: 048
     Dates: start: 201510, end: 20151220

REACTIONS (4)
  - Urinary incontinence [Unknown]
  - Cardiac failure [Fatal]
  - Vomiting [Recovered/Resolved]
  - Enteritis [Unknown]

NARRATIVE: CASE EVENT DATE: 201408
